FAERS Safety Report 5068003-4 (Version None)
Quarter: 2006Q3

REPORT INFORMATION
  Report Type: 
  Country: None (occurrence: None)
  Receive Date: 20060731
  Receipt Date: 20060711
  Transmission Date: 20061208
  Serious: Yes (Hospitalization)
  Sender: FDA-Public Use
  Company Number: 163-20785-06030953

PATIENT
  Age: 72 Year
  Sex: Male

DRUGS (1)
  1. THALOMID [Suspect]
     Indication: MULTIPLE MYELOMA
     Dosage: 1 IN 1 D, ORAL
     Route: 048
     Dates: start: 20060206, end: 20060301

REACTIONS (3)
  - DYSPNOEA [None]
  - IMMUNOSUPPRESSION [None]
  - MALAISE [None]
